FAERS Safety Report 21781489 (Version 1)
Quarter: 2022Q4

REPORT INFORMATION
  Report Type: Other
  Country: KR (occurrence: None)
  Receive Date: 20221227
  Receipt Date: 20221227
  Transmission Date: 20230113
  Serious: Yes (Other)
  Sender: FDA-Public Use
  Company Number: KR-ROCHE-3020719

PATIENT
  Age: 80 Year
  Sex: Male
  Weight: 58.8 kg

DRUGS (23)
  1. ATEZOLIZUMAB [Suspect]
     Active Substance: ATEZOLIZUMAB
     Indication: Hepatocellular carcinoma
     Dosage: MOST RECENT DOSE OF ATEZOLIZUMAB PRIOR TO AE : 24/DEC/2021 AND 14/JAN/2022
     Route: 041
     Dates: start: 20211203
  2. ATEZOLIZUMAB [Suspect]
     Active Substance: ATEZOLIZUMAB
     Dosage: MOST RECENT DOSE OF ATEZOLIZUMAB PRIOR TO AE : 24/DEC/2021 AND 14/JAN/2022
     Route: 041
     Dates: start: 20220204
  3. ATEZOLIZUMAB [Suspect]
     Active Substance: ATEZOLIZUMAB
     Dosage: MOST RECENT DOSE OF ATEZOLIZUMAB PRIOR TO AE : 24/DEC/2021 AND 14/JAN/2022
     Route: 041
     Dates: start: 20220225
  4. ATEZOLIZUMAB [Suspect]
     Active Substance: ATEZOLIZUMAB
     Dosage: MOST RECENT DOSE OF ATEZOLIZUMAB PRIOR TO AE : 24/DEC/2021 AND 14/JAN/2022
     Route: 041
     Dates: start: 20220317
  5. ATEZOLIZUMAB [Suspect]
     Active Substance: ATEZOLIZUMAB
     Dosage: MOST RECENT DOSE OF ATEZOLIZUMAB PRIOR TO AE : 24/DEC/2021 AND 14/JAN/2022
     Route: 042
     Dates: start: 20220407
  6. ATEZOLIZUMAB [Suspect]
     Active Substance: ATEZOLIZUMAB
     Route: 042
     Dates: start: 20211224
  7. ATEZOLIZUMAB [Suspect]
     Active Substance: ATEZOLIZUMAB
     Route: 042
     Dates: start: 20220114
  8. ATEZOLIZUMAB [Suspect]
     Active Substance: ATEZOLIZUMAB
     Route: 042
     Dates: start: 20220428
  9. BEVACIZUMAB [Suspect]
     Active Substance: BEVACIZUMAB
     Indication: Hepatocellular carcinoma
     Dosage: DATE OF MOST RECENT DOSE OF BEVACIZUMAB PRIOR TO AE : 24/DEC/2021 AND 14/JAN/2022
     Route: 042
     Dates: start: 20211203
  10. BEVACIZUMAB [Suspect]
     Active Substance: BEVACIZUMAB
     Dosage: DATE OF MOST RECENT DOSE OF BEVACIZUMAB PRIOR TO AE : 24/DEC/2021, 14/JAN/2022, 04/FEB/2022, 25/FEB/
     Route: 042
     Dates: start: 20220204
  11. BEVACIZUMAB [Suspect]
     Active Substance: BEVACIZUMAB
     Dosage: DATE OF MOST RECENT DOSE OF BEVACIZUMAB PRIOR TO AE : 24/DEC/2021 AND 14/JAN/2022
     Route: 042
     Dates: start: 20211224
  12. BEVACIZUMAB [Suspect]
     Active Substance: BEVACIZUMAB
     Dosage: DATE OF MOST RECENT DOSE OF BEVACIZUMAB PRIOR TO AE : 24/DEC/2021, 14/JAN/2022, 04/FEB/2022, 25/FEB/
     Route: 042
     Dates: start: 20220225
  13. BEVACIZUMAB [Suspect]
     Active Substance: BEVACIZUMAB
     Dosage: DATE OF MOST RECENT DOSE OF BEVACIZUMAB PRIOR TO AE : 24/DEC/2021, 14/JAN/2022, 04/FEB/2022, 25/FEB/
     Route: 042
     Dates: start: 20220114
  14. URSODIOL [Concomitant]
     Active Substance: URSODIOL
     Dates: start: 20211202
  15. ELIQUIS [Concomitant]
     Active Substance: APIXABAN
     Dates: start: 20211216
  16. DOXOFYLLINE [Concomitant]
     Active Substance: DOXOFYLLINE
     Indication: Chronic obstructive pulmonary disease
     Dates: start: 20211223, end: 20220113
  17. MYPOL CAPSULES [Concomitant]
     Indication: Cancer pain
     Dates: start: 20211224
  18. DULACKHAN EASY [Concomitant]
     Indication: Constipation
     Dates: start: 20220204
  19. AMOSARTAN [Concomitant]
     Indication: Hypertension
     Dates: start: 20220317, end: 20220317
  20. CLOPIDOGREL BISULFATE [Concomitant]
     Active Substance: CLOPIDOGREL BISULFATE
     Indication: Portal vein thrombosis
  21. MICATERE [Concomitant]
     Indication: Hypertension
     Dates: start: 20220406, end: 20220406
  22. CLOPIDOGREL BISULFATE [Concomitant]
     Active Substance: CLOPIDOGREL BISULFATE
     Indication: Portal vein thrombosis
     Dates: start: 20220406, end: 20220406
  23. CRESTOR [Concomitant]
     Active Substance: ROSUVASTATIN CALCIUM
     Indication: Hyperlipidaemia
     Dates: start: 20220406, end: 20220406

REACTIONS (5)
  - Constipation [Recovering/Resolving]
  - Insomnia [Recovering/Resolving]
  - Hypertension [Recovering/Resolving]
  - Hyperlipidaemia [Recovering/Resolving]
  - Cerebral infarction [Unknown]

NARRATIVE: CASE EVENT DATE: 20211224
